FAERS Safety Report 8357379-8 (Version None)
Quarter: 2012Q2

REPORT INFORMATION
  Report Type: 
  Country: None (occurrence: None)
  Receive Date: 20120514
  Receipt Date: 20120507
  Transmission Date: 20120825
  Serious: No
  Sender: FDA-Public Use
  Company Number: US-ROXANE LABORATORIES, INC.-2012-RO-00911RO

PATIENT
  Age: 43 Year
  Sex: Male

DRUGS (4)
  1. LUNESTA [Concomitant]
     Indication: INSOMNIA
  2. MELOXICAM [Concomitant]
     Indication: BACK PAIN
  3. MORPHINE SULFATE [Suspect]
     Indication: BACK PAIN
     Dosage: 120 MG
     Route: 048
  4. MORPHINE [Suspect]
     Indication: BACK PAIN
     Dosage: 90 MG
     Route: 048

REACTIONS (1)
  - DRUG SCREEN POSITIVE [None]
